APPROVED DRUG PRODUCT: LOTUSATE
Active Ingredient: TALBUTAL
Strength: 120MG
Dosage Form/Route: TABLET;ORAL
Application: N009410 | Product #005
Applicant: SANOFI AVENTIS US LLC
Approved: Approved Prior to Jan 1, 1982 | RLD: No | RS: No | Type: DISCN